FAERS Safety Report 18415154 (Version 1)
Quarter: 2020Q4

REPORT INFORMATION
  Report Type: Spontaneous
  Country: US (occurrence: US)
  Receive Date: 20201022
  Receipt Date: 20201022
  Transmission Date: 20210114
  Serious: Yes (Hospitalization)
  Sender: FDA-Public Use
  Company Number: None

PATIENT
  Age: 86 Year
  Sex: Male

DRUGS (2)
  1. XELJANZ XR [Suspect]
     Active Substance: TOFACITINIB CITRATE
     Indication: RHEUMATOID ARTHRITIS
     Route: 048
     Dates: start: 20200113
  2. JANUVIA 25MG [Concomitant]
     Active Substance: SITAGLIPTIN PHOSPHATE
     Dates: start: 20200911

REACTIONS (2)
  - Therapy interrupted [None]
  - Bronchitis [None]

NARRATIVE: CASE EVENT DATE: 20201015
